FAERS Safety Report 7036023-6 (Version None)
Quarter: 2010Q4

REPORT INFORMATION
  Report Type: 
  Country: None (occurrence: None)
  Receive Date: 20101007
  Receipt Date: 20101007
  Transmission Date: 20110411
  Serious: No
  Sender: FDA-Public Use
  Company Number: None

PATIENT
  Age: 22 Year
  Sex: Female

DRUGS (1)
  1. QUETIAPINE [Suspect]
     Indication: SCHIZOPHRENIA, PARANOID TYPE
     Dates: start: 20100101, end: 20101001

REACTIONS (3)
  - BENIGN INTRACRANIAL HYPERTENSION [None]
  - BLINDNESS TRANSIENT [None]
  - PAPILLOEDEMA [None]
